FAERS Safety Report 9174205 (Version 1)
Quarter: 2013Q1

REPORT INFORMATION
  Report Type: Spontaneous
  Country: DE (occurrence: None)
  Receive Date: 20130315
  Receipt Date: 20130315
  Transmission Date: 20140127
  Serious: Yes (Congenital Anomaly)
  Sender: FDA-Public Use
  Company Number: 2013-03152

PATIENT
  Sex: Female
  Weight: 2 kg

DRUGS (6)
  1. VENLAFAXINE HYDROCHLORIDE [Suspect]
     Indication: DEPRESSION
     Dosage: 300 [MG/D]/TILL WEEK 5: 300 MG/D; WK: 5-16 150 MG/D; WK 16-28: 75 MG/D; FROM WK 28 ON: 37, 5MG/D, TRANSPLACENTAL
     Route: 064
     Dates: start: 20111012, end: 20120606
  2. METFORMIN HYDROCHLORIDE [Suspect]
     Indication: POLYCYSTIC OVARIES
     Dosage: 1700 [MG/D (2 X 850 MG/D)], TRANSPLACENTAL
     Route: 064
  3. MELPERONE (MELPERONE) [Suspect]
     Indication: DEPRESSION
     Dosage: 200 [MG/D]/TILL WEEK 5: 200 MG/D; WK 5-7: 100 MG/D; WK 7-28: 50 MG/D, FROM WK 28 ON: 25 MG/D, TRANSPLACENTAL
     Route: 064
     Dates: start: 20111012, end: 20120606
  4. DALTEPARIN SODIUM (DALTEPARIN SODIUM) UNKNOWN [Concomitant]
  5. CLOTRIMAZOLE (CLOTRIMAZOLE) [Concomitant]
  6. FEMIBION (CALCIUM PHOSPHATE DIBASIC, FERROUS SUCCINATE, MAGNESIUM HYDROXIDE) [Concomitant]

REACTIONS (12)
  - Maternal drugs affecting foetus [None]
  - Fallot^s tetralogy [None]
  - Congenital uterine anomaly [None]
  - Anal atresia [None]
  - Congenital absence of bile ducts [None]
  - Persistent cloaca [None]
  - Spine malformation [None]
  - Atrial septal defect [None]
  - Right aortic arch [None]
  - Persistent left superior vena cava [None]
  - Premature baby [None]
  - Vaginal septum [None]
